FAERS Safety Report 20632405 (Version 4)
Quarter: 2023Q2

REPORT INFORMATION
  Report Type: Report from Study
  Country: AT (occurrence: AT)
  Receive Date: 20220324
  Receipt Date: 20230425
  Transmission Date: 20230721
  Serious: Yes (Other)
  Sender: FDA-Public Use
  Company Number: AT-OTSUKA-2019_037552

PATIENT
  Age: 51 Year
  Sex: Female
  Weight: 80 kg

DRUGS (15)
  1. TOLVAPTAN [Suspect]
     Active Substance: TOLVAPTAN
     Indication: Congenital cystic kidney disease
     Dosage: 90 MG
     Route: 048
     Dates: start: 20190709
  2. TOLVAPTAN [Suspect]
     Active Substance: TOLVAPTAN
     Dosage: 30 MG
     Route: 048
     Dates: start: 20190709
  3. TOLVAPTAN [Suspect]
     Active Substance: TOLVAPTAN
     Dosage: 45 MG
     Route: 048
     Dates: start: 20190409
  4. TOLVAPTAN [Suspect]
     Active Substance: TOLVAPTAN
     Dosage: 15 MG
     Route: 048
     Dates: start: 20190409
  5. TOLVAPTAN [Suspect]
     Active Substance: TOLVAPTAN
     Dosage: 60 MG
     Route: 048
     Dates: start: 20190604
  6. TOLVAPTAN [Suspect]
     Active Substance: TOLVAPTAN
     Dosage: 30 MG
     Route: 048
     Dates: start: 20190604
  7. RAMIPRIL [Concomitant]
     Active Substance: RAMIPRIL
     Indication: Product used for unknown indication
     Dosage: 5 MG, QD
     Route: 048
     Dates: start: 20190409
  8. HYDROCHLOROTHIAZIDE [Concomitant]
     Active Substance: HYDROCHLOROTHIAZIDE
     Indication: Product used for unknown indication
     Dosage: 25 MG, QD
     Route: 048
     Dates: start: 20190409
  9. OLEOVIT [Concomitant]
     Indication: Product used for unknown indication
     Dosage: 20 GTT, QW
     Route: 048
     Dates: start: 20190108, end: 20210628
  10. ESOMEPRAZOLE [Concomitant]
     Active Substance: ESOMEPRAZOLE
     Indication: Product used for unknown indication
     Dosage: 40 MG, QD
     Route: 048
     Dates: start: 2018, end: 20220119
  11. ESOMEPRAZOLE [Concomitant]
     Active Substance: ESOMEPRAZOLE
     Dosage: 40 MG, AS NECESSARY
     Route: 048
     Dates: start: 20220120, end: 20230208
  12. ESOMEPRAZOLE [Concomitant]
     Active Substance: ESOMEPRAZOLE
     Dosage: 20 MG, AS NECESSARY
     Route: 048
     Dates: start: 20230209
  13. RILMENIDINE [Concomitant]
     Active Substance: RILMENIDINE
     Indication: Product used for unknown indication
     Dosage: 1 MG, BID
     Route: 048
     Dates: start: 2018, end: 20210118
  14. RILMENIDINE [Concomitant]
     Active Substance: RILMENIDINE
     Dosage: 1 MG, QD
     Route: 048
     Dates: start: 20210119
  15. SPIRONOLACTONE [Concomitant]
     Active Substance: SPIRONOLACTONE
     Indication: Product used for unknown indication
     Dosage: 25 MG, QD
     Route: 048
     Dates: start: 2018

REACTIONS (1)
  - Polyneuropathy [Recovered/Resolved]

NARRATIVE: CASE EVENT DATE: 20190713
